FAERS Safety Report 16325421 (Version 1)
Quarter: 2019Q2

REPORT INFORMATION
  Report Type: Spontaneous
  Country: US (occurrence: US)
  Receive Date: 20190517
  Receipt Date: 20190517
  Transmission Date: 20190711
  Serious: No
  Sender: FDA-Public Use
  Company Number: US-BAUSCH-BL-2019-013122

PATIENT
  Age: 73 Year
  Sex: Male

DRUGS (4)
  1. LUMIFY [Concomitant]
     Active Substance: BRIMONIDINE TARTRATE
     Indication: PRODUCT USED FOR UNKNOWN INDICATION
     Route: 047
  2. BRIMONIDINE TARTRATE OPHTHALMIC SOLUTION [Suspect]
     Active Substance: BRIMONIDINE TARTRATE
     Indication: GLAUCOMA
     Route: 047
     Dates: start: 2009
  3. BRIMONIDINE TARTRATE OPHTHALMIC SOLUTION [Suspect]
     Active Substance: BRIMONIDINE TARTRATE
     Route: 047
     Dates: start: 20190426, end: 20190429
  4. XELPROS [Concomitant]
     Active Substance: LATANOPROST
     Indication: GLAUCOMA
     Route: 047
     Dates: start: 2019

REACTIONS (6)
  - Eye disorder [Recovering/Resolving]
  - Eye swelling [Recovering/Resolving]
  - Inappropriate schedule of product administration [Unknown]
  - Ocular discomfort [Recovering/Resolving]
  - Eye pruritus [Recovering/Resolving]
  - Discomfort [Unknown]

NARRATIVE: CASE EVENT DATE: 2009
